FAERS Safety Report 6983476-5 (Version None)
Quarter: 2010Q3

REPORT INFORMATION
  Report Type: 
  Country: None (occurrence: None)
  Receive Date: 20100914
  Receipt Date: 20080815
  Transmission Date: 20110219
  Serious: No
  Sender: FDA-Public Use
  Company Number: US-WYE-H05642308

PATIENT
  Sex: Female

DRUGS (1)
  1. TYGACIL [Suspect]
     Indication: ABDOMINAL INFECTION
     Dosage: 100 MG LOADING DOSE, THEN 50 MG EVERY 12 HOURS
     Route: 042

REACTIONS (1)
  - THERAPEUTIC RESPONSE DELAYED [None]
